FAERS Safety Report 6338215-8 (Version None)
Quarter: 2009Q3

REPORT INFORMATION
  Report Type: 
  Country: None (occurrence: None)
  Receive Date: 20090902
  Receipt Date: 20090831
  Transmission Date: 20100115
  Serious: No
  Sender: FDA-Public Use
  Company Number: US-B.I. PHARMACEUTICALS,INC./RIDGEFIELD-2009-BP-09725BP

PATIENT
  Sex: Female

DRUGS (8)
  1. SPIRIVA [Suspect]
     Indication: CHRONIC OBSTRUCTIVE PULMONARY DISEASE
     Dosage: 18 MCG
     Route: 055
     Dates: start: 20070101
  2. SPIRIVA [Suspect]
     Indication: DYSPNOEA
  3. TOPROL-XL [Concomitant]
     Indication: HYPERTENSION
  4. CLONIDINE [Concomitant]
     Indication: HYPERTENSION
  5. ZOCOR [Concomitant]
     Indication: BLOOD CHOLESTEROL
  6. LANTUS [Concomitant]
     Indication: DIABETES MELLITUS
  7. LASIX [Concomitant]
     Indication: HYPERTENSION
  8. IMDUR [Concomitant]

REACTIONS (5)
  - CYSTITIS [None]
  - DYSURIA [None]
  - ENURESIS [None]
  - RESIDUAL URINE [None]
  - URINARY TRACT INFECTION [None]
